FAERS Safety Report 11114197 (Version 1)
Quarter: 2015Q2

REPORT INFORMATION
  Report Type: Other
  Country: CA (occurrence: CA)
  Receive Date: 20150514
  Receipt Date: 20150514
  Transmission Date: 20150821
  Serious: Yes (Other)
  Sender: FDA-Public Use
  Company Number: CA-TAKEDA-2015TUS000545

PATIENT
  Age: 81 Year
  Sex: Female

DRUGS (14)
  1. MIRTAZAPINE. [Concomitant]
     Active Substance: MIRTAZAPINE
  2. LACTOBACILLUS REUTERI [Concomitant]
     Active Substance: LACTOBACILLUS REUTERI
  3. ZOPICLONE [Concomitant]
     Active Substance: ZOPICLONE
  4. DEXILANT [Suspect]
     Active Substance: DEXLANSOPRAZOLE
     Indication: PRODUCT USED FOR UNKNOWN INDICATION
     Dosage: UNCLEAR, DAILY
     Route: 048
  5. SYMBICORT [Concomitant]
     Active Substance: BUDESONIDE\FORMOTEROL FUMARATE DIHYDRATE
  6. VALSARTAN. [Concomitant]
     Active Substance: VALSARTAN
  7. VENTOLIN [Concomitant]
     Active Substance: ALBUTEROL SULFATE
  8. FUROSEMIDE. [Concomitant]
     Active Substance: FUROSEMIDE
  9. SEROQUEL [Concomitant]
     Active Substance: QUETIAPINE FUMARATE
  10. MULTIVITAMIN                       /00097801/ [Concomitant]
     Active Substance: VITAMINS
  11. ACETAMINOPHEN AND CODEINE [Concomitant]
     Active Substance: ACETAMINOPHEN\CODEINE PHOSPHATE
  12. GABAPENTIN. [Concomitant]
     Active Substance: GABAPENTIN
  13. NOZINAN                            /00038601/ [Concomitant]
     Active Substance: LEVOMEPROMAZINE
  14. TRAZODONE [Concomitant]
     Active Substance: TRAZODONE HYDROCHLORIDE

REACTIONS (4)
  - Stomatitis [Unknown]
  - Tongue haemorrhage [Unknown]
  - Gingival bleeding [Unknown]
  - Oral pain [Unknown]
